FAERS Safety Report 7224316-9 (Version None)
Quarter: 2011Q1

REPORT INFORMATION
  Report Type: 
  Country: None (occurrence: None)
  Receive Date: 20110113
  Receipt Date: 20110106
  Transmission Date: 20110831
  Serious: Yes (Other)
  Sender: FDA-Public Use
  Company Number: US-ELI_LILLY_AND_COMPANY-US201012002726

PATIENT
  Sex: Female
  Weight: 60.771 kg

DRUGS (8)
  1. FOSAMAX [Concomitant]
  2. NEXIUM [Concomitant]
  3. XALATAN [Concomitant]
  4. CRESTOR [Concomitant]
  5. EFFEXOR [Concomitant]
  6. LANTUS [Concomitant]
  7. HUMALOG [Suspect]
     Indication: TYPE 1 DIABETES MELLITUS
     Dosage: UNK, 3/D
  8. LISINOPRIL [Concomitant]

REACTIONS (4)
  - BLOOD GLUCOSE DECREASED [None]
  - DRUG DOSE OMISSION [None]
  - BREAST CANCER [None]
  - DIABETIC KETOACIDOSIS [None]
